FAERS Safety Report 20086137 (Version 1)
Quarter: 2021Q4

REPORT INFORMATION
  Report Type: Spontaneous
  Country: FR (occurrence: FR)
  Receive Date: 20211118
  Receipt Date: 20211118
  Transmission Date: 20220303
  Serious: Yes (Life-Threatening, Other)
  Sender: FDA-Public Use
  Company Number: FR-ABBVIE-21K-056-4166109-00

PATIENT
  Age: 22 Year
  Sex: Male
  Weight: 90 kg

DRUGS (2)
  1. VALPROATE SODIUM [Suspect]
     Active Substance: VALPROATE SODIUM
     Indication: Epilepsy
     Route: 048
     Dates: end: 20200102
  2. VALPROATE SODIUM [Suspect]
     Active Substance: VALPROATE SODIUM
     Indication: Epilepsy
     Dosage: 400 MG/4 ML
     Route: 041
     Dates: start: 20200102, end: 20200105

REACTIONS (8)
  - Altered state of consciousness [Recovered/Resolved]
  - Hypertriglyceridaemia [Recovered/Resolved]
  - Hepatic cytolysis [Recovered/Resolved]
  - Coagulation factor decreased [Recovered/Resolved]
  - Prothrombin time shortened [Recovered/Resolved]
  - Hypofibrinogenaemia [Recovered/Resolved]
  - Hyperammonaemia [Recovered/Resolved]
  - Encephalopathy [Recovered/Resolved]

NARRATIVE: CASE EVENT DATE: 20200101
